FAERS Safety Report 4515552-0 (Version None)
Quarter: 2004Q4

REPORT INFORMATION
  Report Type: 
  Country: None (occurrence: None)
  Receive Date: 20041126
  Receipt Date: 20041112
  Transmission Date: 20050328
  Serious: Yes (Other)
  Sender: FDA-Public Use
  Company Number: 2004083499

PATIENT
  Sex: Female
  Weight: 61.2356 kg

DRUGS (2)
  1. DILANTIN KAPSEAL [Suspect]
     Indication: CONVULSION
     Dosage: 300 MG (100 MG, 3 IN 1 D), ORAL
     Route: 048
     Dates: start: 19720101
  2. VALPROATE SODIUM [Concomitant]

REACTIONS (10)
  - ANTICONVULSANT DRUG LEVEL DECREASED [None]
  - ANTICONVULSANT DRUG LEVEL INCREASED [None]
  - DEMENTIA ALZHEIMER'S TYPE [None]
  - DRUG TOXICITY [None]
  - EAR INFECTION [None]
  - INTERVERTEBRAL DISC DISPLACEMENT [None]
  - NAUSEA [None]
  - OSTEOARTHRITIS [None]
  - ROAD TRAFFIC ACCIDENT [None]
  - VOMITING [None]
